FAERS Safety Report 9729687 (Version 2)
Quarter: 2015Q3

REPORT INFORMATION
  Report Type: Spontaneous
  Country: US (occurrence: US)
  Receive Date: 20131204
  Receipt Date: 20150804
  Transmission Date: 20151125
  Serious: No
  Sender: FDA-Public Use
  Company Number: US-GILEAD-2009-0020998

PATIENT
  Age: 71 Year
  Sex: Female
  Weight: 44 kg

DRUGS (16)
  1. LYRICA [Concomitant]
     Active Substance: PREGABALIN
  2. SIMVASTATIN. [Concomitant]
     Active Substance: SIMVASTATIN
  3. IPRATROPIUM BR [Concomitant]
  4. PROVENTIL [Concomitant]
     Active Substance: ALBUTEROL
  5. PREDNISONE. [Concomitant]
     Active Substance: PREDNISONE
  6. LETAIRIS [Suspect]
     Active Substance: AMBRISENTAN
     Indication: PULMONARY ARTERIAL HYPERTENSION
     Route: 048
     Dates: start: 20090303, end: 20090318
  7. CELEBREX [Concomitant]
     Active Substance: CELECOXIB
  8. PROZAC [Concomitant]
     Active Substance: FLUOXETINE HYDROCHLORIDE
  9. ALBUTEROL. [Concomitant]
     Active Substance: ALBUTEROL
  10. ASPIRIN. [Concomitant]
     Active Substance: ASPIRIN
  11. VITAMIN DRINK [Concomitant]
  12. REVATIO [Concomitant]
     Active Substance: SILDENAFIL CITRATE
  13. DILTIAZEM [Concomitant]
     Active Substance: DILTIAZEM
  14. GABAPENTIN. [Concomitant]
     Active Substance: GABAPENTIN
  15. ENALAPRIL MALEATE. [Concomitant]
     Active Substance: ENALAPRIL MALEATE
  16. CITALOPRAM [Concomitant]
     Active Substance: CITALOPRAM HYDROBROMIDE

REACTIONS (3)
  - Peripheral swelling [Unknown]
  - Pain in extremity [Unknown]
  - Therapeutic response decreased [Unknown]
